FAERS Safety Report 5949223-0 (Version None)
Quarter: 2008Q4

REPORT INFORMATION
  Report Type: 
  Country: None (occurrence: None)
  Receive Date: 20081111
  Receipt Date: 20081029
  Transmission Date: 20090506
  Serious: Yes (Disabling)
  Sender: FDA-Public Use
  Company Number: IT-GENENTECH-261232

PATIENT
  Sex: Male

DRUGS (3)
  1. MABTHERA [Suspect]
     Indication: MANTLE CELL LYMPHOMA
     Dosage: 770 MG, UNK
     Route: 042
     Dates: start: 20070116, end: 20080401
  2. CYCLOSPORINE [Suspect]
     Indication: STEM CELL TRANSPLANT
     Dosage: 3 MG/KG, QD
     Route: 042
     Dates: start: 20060309, end: 20060328
  3. CYCLOSPORINE [Suspect]
     Dosage: 250 MG, QD
     Route: 048
     Dates: start: 20060329, end: 20061011

REACTIONS (3)
  - HEMIANOPIA [None]
  - PROGRESSIVE MULTIFOCAL LEUKOENCEPHALOPATHY [None]
  - VISUAL FIELD DEFECT [None]
